FAERS Safety Report 5474747-2 (Version None)
Quarter: 2007Q4

REPORT INFORMATION
  Report Type: 
  Country: None (occurrence: None)
  Receive Date: 20071002
  Receipt Date: 20070924
  Transmission Date: 20080405
  Serious: Yes (Other)
  Sender: FDA-Public Use
  Company Number: A0674707A

PATIENT
  Age: 31 Year
  Sex: Female
  Weight: 88.2 kg

DRUGS (8)
  1. WELLBUTRIN XL [Suspect]
     Indication: DEPRESSION
     Dosage: 450MGD SEE DOSAGE TEXT
     Route: 048
     Dates: start: 20070401, end: 20070817
  2. ZYRTEC [Concomitant]
     Indication: ALLERGY TO CHEMICALS
     Dosage: 10MG AT NIGHT
     Route: 048
  3. LEVOTHYROXINE SODIUM [Concomitant]
     Indication: HYPOTHYROIDISM
     Dosage: .5MG AT NIGHT
     Route: 048
     Dates: start: 20070501
  4. ALBUTEROL [Concomitant]
     Indication: ASTHMA
     Dosage: 2PUFF AS REQUIRED
     Route: 055
     Dates: start: 19800101
  5. XOLAIR [Concomitant]
     Indication: ASTHMA
     Route: 058
     Dates: start: 20060101
  6. ZOLOFT [Concomitant]
     Dosage: 100MG PER DAY
     Route: 048
  7. BIRTH CONTROL PILLS [Concomitant]
  8. PHENERGAN HCL [Concomitant]

REACTIONS (17)
  - APHASIA [None]
  - BACK PAIN [None]
  - DIZZINESS [None]
  - FALL [None]
  - FOAMING AT MOUTH [None]
  - GRAND MAL CONVULSION [None]
  - HAEMATOMA [None]
  - HEAD INJURY [None]
  - HYPOXIA [None]
  - LOSS OF CONSCIOUSNESS [None]
  - POSTICTAL HEADACHE [None]
  - POSTICTAL STATE [None]
  - SENSORY DISTURBANCE [None]
  - SINUS ARRHYTHMIA [None]
  - THINKING ABNORMAL [None]
  - TONGUE BITING [None]
  - TREMOR [None]
